FAERS Safety Report 8173798-7 (Version None)
Quarter: 2012Q1

REPORT INFORMATION
  Report Type: 
  Country: None (occurrence: None)
  Receive Date: 20120229
  Receipt Date: 20120216
  Transmission Date: 20120608
  Serious: Yes (Hospitalization)
  Sender: FDA-Public Use
  Company Number: US-ELI_LILLY_AND_COMPANY-US201202006340

PATIENT
  Age: 38 Year
  Sex: Female

DRUGS (5)
  1. STRATTERA [Suspect]
     Dosage: 40 MG, UNK
  2. DEPAKOTE [Concomitant]
  3. TEGRETOL [Concomitant]
  4. REMERON [Concomitant]
  5. BUSPAR [Concomitant]

REACTIONS (1)
  - MANIA [None]
